FAERS Safety Report 7657655-8 (Version None)
Quarter: 2011Q3

REPORT INFORMATION
  Report Type: 
  Country: None (occurrence: None)
  Receive Date: 20110804
  Receipt Date: 20110726
  Transmission Date: 20111222
  Serious: Yes (Hospitalization, Other)
  Sender: FDA-Public Use
  Company Number: US-ASTRAZENECA-2011SE44544

PATIENT
  Age: 75 Year
  Sex: Female

DRUGS (7)
  1. HYZAAR [Concomitant]
  2. PLAVIX [Concomitant]
  3. PEPCID [Concomitant]
  4. ASPIRIN [Concomitant]
  5. METOPROLOL TARTRATE [Concomitant]
  6. CRESTOR [Suspect]
     Indication: HYPERCHOLESTEROLAEMIA
     Route: 048
  7. COUMADIN [Concomitant]

REACTIONS (5)
  - HAEMORRHAGE [None]
  - FACTOR V LEIDEN MUTATION [None]
  - CARDIAC OPERATION [None]
  - CEREBROVASCULAR ACCIDENT [None]
  - VASCULAR GRAFT [None]
